FAERS Safety Report 4953887-8 (Version None)
Quarter: 2006Q1

REPORT INFORMATION
  Report Type: 
  Country: None (occurrence: None)
  Receive Date: 20060323
  Receipt Date: 20060323
  Transmission Date: 20060701
  Serious: No
  Sender: FDA-Public Use
  Company Number: None

PATIENT

DRUGS (1)
  1. PAROXETINE HCL [Suspect]
     Dosage: 30 MG PO
     Route: 048
     Dates: start: 20030901, end: 20031001

REACTIONS (2)
  - ABDOMINAL PAIN UPPER [None]
  - PANIC DISORDER [None]
